FAERS Safety Report 4403613-6 (Version None)
Quarter: 2004Q3

REPORT INFORMATION
  Report Type: 
  Country: None (occurrence: None)
  Receive Date: 20040719
  Receipt Date: 20040712
  Transmission Date: 20050211
  Serious: Yes (Hospitalization, Other)
  Sender: FDA-Public Use
  Company Number: 2004046622

PATIENT
  Age: 35 Year
  Sex: Female

DRUGS (2)
  1. NEURONTIN [Suspect]
     Indication: ILL-DEFINED DISORDER
     Dosage: UNKNOWN (UNKNOWN), UNKNOWN
     Route: 065
  2. ... [Concomitant]

REACTIONS (1)
  - NEUTROPENIA [None]
